FAERS Safety Report 7984049-8 (Version None)
Quarter: 2011Q4

REPORT INFORMATION
  Report Type: 
  Country: None (occurrence: None)
  Receive Date: 20111216
  Receipt Date: 20111207
  Transmission Date: 20120403
  Serious: Yes (Other)
  Sender: FDA-Public Use
  Company Number: GB-PFIZER INC-2011126971

PATIENT
  Sex: Female
  Weight: 124 kg

DRUGS (9)
  1. ESCITALOPRAM [Concomitant]
     Indication: DEPRESSION
  2. RAMIPRIL [Suspect]
     Indication: RENAL VESSEL DISORDER
     Route: 048
  3. RAMIPRIL [Suspect]
     Indication: RENAL ISCHAEMIA
  4. SEROQUEL [Suspect]
     Dosage: 450 MG, 1X/DAY
  5. SEROQUEL [Suspect]
     Indication: SCHIZOAFFECTIVE DISORDER BIPOLAR TYPE
     Dosage: 100 MG A.M. AND 250 MG AT NIGHT
     Route: 048
     Dates: start: 20100101
  6. ESCITALOPRAM [Concomitant]
     Indication: ANXIETY
     Dosage: 10 MG, 1X/DAY
     Route: 048
  7. RAMIPRIL [Suspect]
     Indication: RENAL DISORDER
  8. VALPROIC ACID [Concomitant]
     Indication: MOOD ALTERED
     Dosage: 800 MG, 1X/DAY
     Route: 048
  9. VALPROIC ACID [Concomitant]
     Indication: AFFECTIVE DISORDER

REACTIONS (6)
  - DIVERTICULITIS [None]
  - ANXIETY [None]
  - ORTHOSTATIC HYPOTENSION [None]
  - DIARRHOEA [None]
  - DRUG INTOLERANCE [None]
  - DIZZINESS [None]
